FAERS Safety Report 24250512 (Version 1)
Quarter: 2024Q3

REPORT INFORMATION
  Report Type: Spontaneous
  Country: CA (occurrence: CA)
  Receive Date: 20240826
  Receipt Date: 20240826
  Transmission Date: 20241017
  Serious: Yes (Hospitalization)
  Sender: TEVA
  Company Number: CA-TEVA-VS-3234471

PATIENT
  Age: 4 Year
  Sex: Male
  Weight: 14 kg

DRUGS (7)
  1. METHOTREXATE [Suspect]
     Active Substance: METHOTREXATE
     Indication: Precursor T-lymphoblastic lymphoma/leukaemia
     Dosage: DOSAGE FORM; SOLUTION INTRA-ARTERIAL
     Route: 042
  2. CASPOFUNGIN [Concomitant]
     Active Substance: CASPOFUNGIN
     Indication: Product used for unknown indication
     Route: 065
  3. PIPERACILLIN SODIUM\TAZOBACTAM SODIUM [Concomitant]
     Active Substance: PIPERACILLIN SODIUM\TAZOBACTAM SODIUM
     Indication: Product used for unknown indication
     Route: 065
  4. VITAMIN D [Concomitant]
     Active Substance: VITAMIN D NOS
     Indication: Product used for unknown indication
     Route: 065
  5. POLYETHYLENE GLYCOL 3350 [Concomitant]
     Active Substance: POLYETHYLENE GLYCOL 3350
     Indication: Product used for unknown indication
     Dosage: DOSAGE FORM: POWDER FOR SOLUTION ORAL
     Route: 065
  6. PENTAMIDINE ISETHIONATE [Concomitant]
     Active Substance: PENTAMIDINE ISETHIONATE
     Indication: Product used for unknown indication
     Dosage: INJ 300MG/VIAL BP
     Route: 065
  7. NABILONE [Concomitant]
     Active Substance: NABILONE
     Indication: Product used for unknown indication
     Route: 065

REACTIONS (1)
  - Febrile neutropenia [Recovered/Resolved]
